FAERS Safety Report 18525190 (Version 1)
Quarter: 2020Q4

REPORT INFORMATION
  Report Type: Spontaneous
  Country: FR (occurrence: FR)
  Receive Date: 20201119
  Receipt Date: 20201119
  Transmission Date: 20210114
  Serious: Yes (Life-Threatening, Hospitalization, Other)
  Sender: FDA-Public Use
  Company Number: FR-ELI_LILLY_AND_COMPANY-FR202011006353

PATIENT
  Age: 42 Year
  Sex: Female
  Weight: 56 kg

DRUGS (3)
  1. LAMOTRIGINE. [Suspect]
     Active Substance: LAMOTRIGINE
     Indication: TOXICITY TO VARIOUS AGENTS
     Dosage: 1500 MG, SINGLE
     Route: 048
     Dates: start: 20201101, end: 20201101
  2. DULOXETINE HYDROCHLORIDE. [Suspect]
     Active Substance: DULOXETINE HYDROCHLORIDE
     Indication: TOXICITY TO VARIOUS AGENTS
     Dosage: 6720 MG, SINGLE
     Route: 048
     Dates: start: 20201101, end: 20201101
  3. THERALENE [Suspect]
     Active Substance: TRIMEPRAZINE
     Indication: TOXICITY TO VARIOUS AGENTS
     Dosage: 1 DOSAGE FORM, SINGLE
     Route: 048
     Dates: start: 20201101, end: 20201101

REACTIONS (5)
  - Generalised tonic-clonic seizure [Recovered/Resolved]
  - Bradypnoea [Recovered/Resolved]
  - Toxicity to various agents [Unknown]
  - Hypotension [Recovered/Resolved]
  - Coma [Recovered/Resolved]

NARRATIVE: CASE EVENT DATE: 20201101
